FAERS Safety Report 7083195-3 (Version None)
Quarter: 2010Q4

REPORT INFORMATION
  Report Type: 
  Country: None (occurrence: None)
  Receive Date: 20101027
  Receipt Date: 20101014
  Transmission Date: 20110411
  Serious: Yes (Other)
  Sender: FDA-Public Use
  Company Number: DSJ-2010-06304

PATIENT
  Age: 33 Year
  Sex: Female

DRUGS (6)
  1. BENICAR HCT [Suspect]
     Indication: HYPERTENSION
     Dosage: 20/12.5 MG (1 IN 1 D), PER ORAL, 40/25 MG (1 IN 1 D), PER ORAL
     Route: 048
     Dates: start: 20090701, end: 20100401
  2. BENICAR HCT [Suspect]
     Indication: HYPERTENSION
     Dosage: 20/12.5 MG (1 IN 1 D), PER ORAL, 40/25 MG (1 IN 1 D), PER ORAL
     Route: 048
     Dates: start: 20100401
  3. METFORMIN HCL [Concomitant]
  4. SITAGLIPTIN (SITAGLIPTIN) (SITAGLIPTIN) [Concomitant]
  5. FENOFIBRATE [Concomitant]
  6. AMLODIPINE [Concomitant]

REACTIONS (5)
  - BLOOD PRESSURE INCREASED [None]
  - DRUG INEFFECTIVE [None]
  - HEADACHE [None]
  - HYPOAESTHESIA [None]
  - VOMITING [None]
